FAERS Safety Report 4470718-3 (Version None)
Quarter: 2004Q4

REPORT INFORMATION
  Report Type: 
  Country: None (occurrence: None)
  Receive Date: 20041006
  Receipt Date: 20040923
  Transmission Date: 20050328
  Serious: Yes (Hospitalization)
  Sender: FDA-Public Use
  Company Number: 2004CG01707

PATIENT
  Age: 80 Year
  Sex: Female

DRUGS (5)
  1. NOLVADEX [Suspect]
     Indication: BREAST CANCER
     Dosage: 20 MG QD PO
     Route: 048
     Dates: start: 20020615, end: 20040119
  2. MOTILIUM ^BYE GULDEN^ [Concomitant]
  3. OGAST [Concomitant]
  4. FOLIC ACID [Concomitant]
  5. TARDYFERON /GFR/ [Concomitant]

REACTIONS (9)
  - BLOOD FIBRINOGEN DECREASED [None]
  - BLOOD PRESSURE INCREASED [None]
  - COAGULATION FACTOR V LEVEL DECREASED [None]
  - HEPATIC CIRRHOSIS [None]
  - HEPATIC FAILURE [None]
  - HEPATIC STEATOSIS [None]
  - HYPONATRAEMIA [None]
  - OEDEMA [None]
  - PROTHROMBIN LEVEL DECREASED [None]
